FAERS Safety Report 13151165 (Version 1)
Quarter: 2017Q1

REPORT INFORMATION
  Report Type: Spontaneous
  Country: US (occurrence: US)
  Receive Date: 20170122
  Receipt Date: 20170122
  Transmission Date: 20170428
  Serious: No
  Sender: FDA-Public Use
  Company Number: None

PATIENT
  Age: 77 Year
  Sex: Male
  Weight: 78.75 kg

DRUGS (1)
  1. FENTANYL TRANSDERMAL SYSTEM [Suspect]
     Active Substance: FENTANYL
     Indication: CANCER PAIN
     Dosage: ?          OTHER STRENGTH:PATCH;QUANTITY:1 PATCH(ES);OTHER FREQUENCY:EVERY 72 HOURS;?
     Route: 058
     Dates: start: 20170116, end: 20170120

REACTIONS (3)
  - Adverse drug reaction [None]
  - Wrong technique in product usage process [None]
  - Accidental overdose [None]

NARRATIVE: CASE EVENT DATE: 20170120
